FAERS Safety Report 17120034 (Version 1)
Quarter: 2019Q4

REPORT INFORMATION
  Report Type: Report from Study
  Country: BE (occurrence: BE)
  Receive Date: 20191206
  Receipt Date: 20191206
  Transmission Date: 20200122
  Serious: Yes (Other)
  Sender: FDA-Public Use
  Company Number: PHHY2015BE003489

PATIENT
  Age: 53 Year
  Sex: Female

DRUGS (3)
  1. VESICARE [Concomitant]
     Active Substance: SOLIFENACIN SUCCINATE
     Indication: HYPERTONIC BLADDER
     Dosage: UNK
     Route: 065
     Dates: start: 20140825
  2. GILENYA [Suspect]
     Active Substance: FINGOLIMOD HYDROCHLORIDE
     Indication: MULTIPLE SCLEROSIS
     Dosage: QD
     Route: 048
     Dates: start: 20140616
  3. OMEPRAZOLE. [Concomitant]
     Active Substance: OMEPRAZOLE
     Indication: PROPHYLAXIS
     Dosage: UNK
     Route: 065
     Dates: start: 20190709, end: 20190709

REACTIONS (14)
  - Blood alkaline phosphatase increased [Unknown]
  - Vitamin D deficiency [Recovered/Resolved]
  - Folate deficiency [Recovered/Resolved]
  - Lymphocyte count increased [Unknown]
  - Gamma-glutamyltransferase increased [Unknown]
  - Back pain [Recovered/Resolved]
  - Lymphocyte percentage decreased [Unknown]
  - Arthralgia [Unknown]
  - Back pain [Unknown]
  - Lymphocyte count decreased [Unknown]
  - Vitamin B12 deficiency [Recovered/Resolved]
  - Visual impairment [Unknown]
  - Osteopenia [Unknown]
  - Bursitis [Recovered/Resolved]

NARRATIVE: CASE EVENT DATE: 20140711
